FAERS Safety Report 18754363 (Version 1)
Quarter: 2021Q1

REPORT INFORMATION
  Report Type: Spontaneous
  Country: US (occurrence: US)
  Receive Date: 20210119
  Receipt Date: 20210119
  Transmission Date: 20210419
  Serious: Yes (Other)
  Sender: FDA-Public Use
  Company Number: US-ALVOGEN-2021-ALVOGEN-116136

PATIENT
  Age: 34 Year
  Sex: Male

DRUGS (1)
  1. OXYCODONE [Suspect]
     Active Substance: OXYCODONE
     Indication: BACK PAIN
     Dosage: 90 MME DAILY

REACTIONS (3)
  - Hypothalamic pituitary adrenal axis suppression [Unknown]
  - Erectile dysfunction [Unknown]
  - Adrenal insufficiency [Unknown]
